FAERS Safety Report 9380772 (Version 4)
Quarter: 2014Q1

REPORT INFORMATION
  Report Type: Spontaneous
  Country: ES (occurrence: ES)
  Receive Date: 20130702
  Receipt Date: 20140318
  Transmission Date: 20141002
  Serious: Yes (Disabling)
  Sender: FDA-Public Use
  Company Number: ES-PFIZER INC-2013192439

PATIENT
  Age: 3 Year
  Sex: Female

DRUGS (2)
  1. CITARABINA [Suspect]
     Dosage: 500 MG, AS NEEDED
     Route: 050
     Dates: start: 20121102
  2. METHOTREXATE [Suspect]
     Dosage: 50 MG, AS NEEDED
     Route: 037
     Dates: start: 20121102

REACTIONS (1)
  - Radiculopathy [Not Recovered/Not Resolved]
